FAERS Safety Report 5649234-9 (Version None)
Quarter: 2008Q1

REPORT INFORMATION
  Report Type: 
  Country: None (occurrence: None)
  Receive Date: 20080304
  Receipt Date: 20071203
  Transmission Date: 20080703
  Serious: No
  Sender: FDA-Public Use
  Company Number: US-BAYER-200715396NA

PATIENT
  Age: 43 Year
  Sex: Male
  Weight: 116 kg

DRUGS (3)
  1. ULTRAVIST 150 [Suspect]
     Indication: COMPUTERISED TOMOGRAM
     Dosage: UNIT DOSE: 100 ML
     Route: 042
     Dates: start: 20071203, end: 20071203
  2. PLAVIX [Concomitant]
  3. PREVACID [Concomitant]

REACTIONS (1)
  - URTICARIA [None]
